FAERS Safety Report 9494132 (Version 1)
Quarter: 2013Q3

REPORT INFORMATION
  Report Type: Report from Study
  Country: US (occurrence: US)
  Receive Date: 20130903
  Receipt Date: 20130903
  Transmission Date: 20140515
  Serious: Yes (Other)
  Sender: FDA-Public Use
  Company Number: PHEH2013US018454

PATIENT
  Age: 79 Year
  Sex: Male

DRUGS (12)
  1. TASIGNA [Suspect]
     Indication: CHRONIC MYELOID LEUKAEMIA
     Dosage: 150 MG, Q12H
     Route: 048
     Dates: start: 20130808, end: 20130827
  2. AMLODIPINE [Concomitant]
  3. ASPIRIN [Concomitant]
  4. ATORVASTATIN [Concomitant]
  5. CLOPIDOGREL [Concomitant]
  6. FOLIC ACID [Concomitant]
  7. LOSARTAN [Concomitant]
  8. PROTONEX [Concomitant]
  9. METOPROLOL [Concomitant]
  10. SYNTHROID [Concomitant]
  11. VIT B6 [Concomitant]
  12. VITAMIN B12 [Concomitant]

REACTIONS (1)
  - Renal disorder [Unknown]
